FAERS Safety Report 20017741 (Version 1)
Quarter: 2021Q4

REPORT INFORMATION
  Report Type: Spontaneous
  Country: US (occurrence: US)
  Receive Date: 20211031
  Receipt Date: 20211031
  Transmission Date: 20220303
  Serious: Yes (Other)
  Sender: FDA-Public Use
  Company Number: US-MLMSERVICE-20211014-3165864-1

PATIENT
  Age: 73 Year
  Sex: Female

DRUGS (4)
  1. MYCOPHENOLATE MOFETIL [Suspect]
     Active Substance: MYCOPHENOLATE MOFETIL
     Indication: Product used for unknown indication
  2. NINTEDANIB [Concomitant]
     Active Substance: NINTEDANIB
     Dosage: INTERMITTENTLY
  3. ESOMEPRAZOLE [Concomitant]
     Active Substance: ESOMEPRAZOLE
  4. METHOTREXATE [Concomitant]
     Active Substance: METHOTREXATE
     Dosage: INTERMITTENTLY

REACTIONS (3)
  - Pulmonary fibrosis [Recovering/Resolving]
  - Pulmonary mass [Recovering/Resolving]
  - Pulmonary cavitation [Recovering/Resolving]
